FAERS Safety Report 12881037 (Version 1)
Quarter: 2016Q4

REPORT INFORMATION
  Report Type: Spontaneous
  Country: US (occurrence: US)
  Receive Date: 20161025
  Receipt Date: 20161025
  Transmission Date: 20170207
  Serious: No
  Sender: FDA-Public Use
  Company Number: US-JNJFOC-20160903450

PATIENT
  Sex: Male
  Weight: 93.9 kg

DRUGS (1)
  1. RISPERDAL [Suspect]
     Active Substance: RISPERIDONE
     Indication: TOURETTE^S DISORDER
     Route: 048

REACTIONS (6)
  - Insomnia [Unknown]
  - Abnormal weight gain [Recovering/Resolving]
  - Gynaecomastia [Unknown]
  - Pituitary tumour benign [Unknown]
  - Off label use [Unknown]
  - Product use issue [Unknown]
